FAERS Safety Report 15883690 (Version 1)
Quarter: 2019Q1

REPORT INFORMATION
  Report Type: Spontaneous
  Country: FR (occurrence: FR)
  Receive Date: 20190129
  Receipt Date: 20190129
  Transmission Date: 20190417
  Serious: Yes (Hospitalization)
  Sender: FDA-Public Use
  Company Number: PHHY2019FR016391

PATIENT
  Age: 36 Year
  Sex: Male
  Weight: 66.5 kg

DRUGS (4)
  1. IBUPROFEN. [Suspect]
     Active Substance: IBUPROFEN
     Indication: POISONING DELIBERATE
     Dosage: UNK
     Route: 048
  2. ALPRAZOLAM. [Suspect]
     Active Substance: ALPRAZOLAM
     Indication: POISONING DELIBERATE
     Dosage: UNK
     Route: 048
  3. NIFLURIL (NIFLUMIC ACID) [Suspect]
     Active Substance: NIFLUMIC ACID
     Indication: POISONING DELIBERATE
     Dosage: UNK
     Route: 048
  4. PARACETAMOL [Suspect]
     Active Substance: ACETAMINOPHEN
     Indication: POISONING DELIBERATE
     Dosage: UNK
     Route: 048

REACTIONS (3)
  - Somnolence [Recovered/Resolved]
  - Toxicity to various agents [Recovering/Resolving]
  - Hepatocellular injury [Recovering/Resolving]

NARRATIVE: CASE EVENT DATE: 20181230
